FAERS Safety Report 8150980-6 (Version None)
Quarter: 2012Q1

REPORT INFORMATION
  Report Type: 
  Country: None (occurrence: None)
  Receive Date: 20120220
  Receipt Date: 20120215
  Transmission Date: 20120608
  Serious: Yes (Life-Threatening, Hospitalization, Other)
  Sender: FDA-Public Use
  Company Number: US-BAYER-2011-048967

PATIENT
  Age: 38 Year
  Sex: Female

DRUGS (14)
  1. YASMIN [Suspect]
     Dosage: UNK
     Dates: start: 20060701, end: 20100101
  2. PREDNISONE [Concomitant]
     Dosage: 20 MG, UNK
     Route: 048
     Dates: start: 20090615
  3. XANAX [Concomitant]
     Dosage: 0.5 MG, UNK
     Route: 048
     Dates: start: 20070920, end: 20100101
  4. TRILIPIX [Concomitant]
     Dosage: UNK
     Dates: start: 20100101
  5. YAZ [Suspect]
  6. SERTRALINE HYDROCHLORIDE [Concomitant]
     Dosage: UNK
     Route: 048
     Dates: start: 20091230
  7. BETAMETHASONE [Concomitant]
     Dosage: UNK
     Dates: start: 20100101
  8. ELOCON [Concomitant]
     Dosage: UNK UNK, BID
     Route: 061
     Dates: start: 20090615, end: 20100101
  9. ZOVIRAX [Concomitant]
     Dosage: UNK
     Route: 061
     Dates: start: 20090615, end: 20100101
  10. DROSPIRENONE AND ETHINYL ESTRADIOL [Suspect]
  11. METOPROLOL TARTRATE [Concomitant]
     Dosage: 50 MG, BID
     Route: 048
     Dates: start: 20081001, end: 20100101
  12. ZOLOFT [Concomitant]
     Dosage: 100 MG, UNK
     Route: 048
     Dates: start: 20090615, end: 20100101
  13. XYZAL [Concomitant]
     Dosage: 5 MG, UNK
     Route: 048
     Dates: start: 20090615, end: 20100101
  14. CLARITIN [Concomitant]
     Dosage: 10 MG, UNK
     Route: 048
     Dates: start: 20090715, end: 20100101

REACTIONS (15)
  - DEEP VEIN THROMBOSIS [None]
  - THROMBOSIS [None]
  - CHOLELITHIASIS [None]
  - THROMBOPHLEBITIS SUPERFICIAL [None]
  - INTERNAL INJURY [None]
  - ORGAN FAILURE [None]
  - GALLBLADDER NON-FUNCTIONING [None]
  - EMOTIONAL DISTRESS [None]
  - PAIN [None]
  - ANXIETY [None]
  - GALLBLADDER CHOLESTEROLOSIS [None]
  - CHOLECYSTITIS CHRONIC [None]
  - INJURY [None]
  - GENERAL PHYSICAL HEALTH DETERIORATION [None]
  - ANHEDONIA [None]
